FAERS Safety Report 9696134 (Version 3)
Quarter: 2014Q1

REPORT INFORMATION
  Report Type: Spontaneous
  Country: US (occurrence: None)
  Receive Date: 20131115
  Receipt Date: 20140204
  Transmission Date: 20141002
  Serious: Yes (Hospitalization, Disabling, Other)
  Sender: FDA-Public Use
  Company Number: JPI-P-030403

PATIENT
  Age: 52 Year
  Sex: Female
  Weight: 48.2 kg

DRUGS (28)
  1. XYREM (SODIUM OXYBATE) ORAL SOLUTION, 500MG/ML [Suspect]
     Indication: NARCOLEPSY
     Dosage: SINGLE, ORAL
     Route: 048
     Dates: start: 200305
  2. XYREM (SODIUM OXYBATE) ORAL SOLUTION, 500MG/ML [Suspect]
     Indication: CATAPLEXY
     Dosage: SINGLE, ORAL
     Route: 048
     Dates: start: 200305
  3. XYREM (SODIUM OXYBATE) ORAL SOLUTION, 500MG/ML [Suspect]
     Dosage: SINGLE, ORAL
     Route: 048
     Dates: start: 200305
  4. LEVOTHYROXINE SODIUM (LEVOTHYROXINE SODIUM) [Concomitant]
  5. MOBIC (MELOXICAM) [Concomitant]
  6. PROVIGIL (MODAFINIL) [Concomitant]
  7. INTAL (CROMOGLICATE SODIUM) [Concomitant]
  8. IPRATROPIUM BROMIDE (IPRATROPIUM BROMIDE) [Concomitant]
  9. QVAR (BECLOMETASONE DIPROPIONATE) [Concomitant]
  10. MONTELUKAST SODIUM (MONTELUKAST SODIUM) [Concomitant]
  11. LIDOCAINE (LIDOCAINE) [Concomitant]
  12. SOMA (CARISOPRODOL) [Concomitant]
  13. HYDROCODONE BITARTRATE AND ACETAMINOPHEN (HYDROCODONE BITARTRATE, PARACETAMOL) [Concomitant]
  14. HYOSCYAMINE (HYOSCYAMINE) [Concomitant]
  15. CETIRIZINE (CETIRIZINE) [Concomitant]
  16. BOTULINUM TOXIN TYPE A (BOTULINUM TOXIN TYPE A) [Concomitant]
  17. TRAMADOL (TRAMADOL) [Concomitant]
  18. SPIRONOLACTONE (SPIRONOLACTONE) [Concomitant]
  19. OXYCONTIN (OXYCODONE HYDROCHLORIDE) [Concomitant]
  20. ESTRADIOL (ESTRADIOL) [Concomitant]
  21. CYCLOSPORINE (CICLOSPORIN) [Concomitant]
  22. PREDNISONE (PREDNISONE) [Concomitant]
  23. ARFORMOTEROL TARTRATE (ARFORMOTEROL TARTRATE) [Concomitant]
  24. MAXAIR (PIRBUTEROL ACETATE) [Concomitant]
  25. FUROSEMIDE (FUROSEMIDE) [Concomitant]
  26. GABAPENTIN (GABAPENTIN) [Concomitant]
  27. BACLOFEN (BACLOFEN) [Concomitant]
  28. DRISDOL (ERGOCALCIFEROL) [Concomitant]

REACTIONS (17)
  - Spinal pain [None]
  - Condition aggravated [None]
  - Nerve compression [None]
  - Carpal tunnel syndrome [None]
  - Back pain [None]
  - Autonomic neuropathy [None]
  - Vocal cord disorder [None]
  - Bladder spasm [None]
  - Urinary retention [None]
  - Gastrointestinal disorder [None]
  - Endodontic procedure [None]
  - Artificial crown procedure [None]
  - Exostosis [None]
  - Spinal cord injury [None]
  - Viral myelitis [None]
  - Tooth disorder [None]
  - Fatigue [None]
